FAERS Safety Report 4487673-2 (Version None)
Quarter: 2004Q4

REPORT INFORMATION
  Report Type: 
  Country: None (occurrence: None)
  Receive Date: 20041025
  Receipt Date: 20041019
  Transmission Date: 20050328
  Serious: Yes (Death, Disabling)
  Sender: FDA-Public Use
  Company Number: 2004-121360-NL

PATIENT
  Age: 74 Year
  Sex: Female

DRUGS (13)
  1. DANAPAROID SODIUM [Suspect]
     Indication: DISSEMINATED INTRAVASCULAR COAGULATION
     Dosage: 1250 ANTI XA INTRAVENOUS (NOS)
     Route: 042
     Dates: start: 20041007
  2. NONTHRON [Concomitant]
  3. CARBENIN [Concomitant]
  4. IMMUNE GLOBULIN INTRAVENOUS (HUMAN) [Concomitant]
  5. AMIKACIN [Concomitant]
  6. FLUCONAZOLE [Concomitant]
  7. ULINASTATIN [Concomitant]
  8. DOPAMINE HYDROCHLORIDE [Concomitant]
  9. NOREPINEPHRINE [Concomitant]
  10. ALBUMIN (HUMAN) [Concomitant]
  11. FAMOTIDINE [Concomitant]
  12. TRETINOIN [Concomitant]
  13. PLATELETS [Concomitant]

REACTIONS (5)
  - HEPATIC FUNCTION ABNORMAL [None]
  - RED BLOOD CELL COUNT DECREASED [None]
  - RENAL IMPAIRMENT [None]
  - SHOCK [None]
  - WHITE BLOOD CELL COUNT INCREASED [None]
